FAERS Safety Report 20086657 (Version 1)
Quarter: 2021Q4

REPORT INFORMATION
  Report Type: Spontaneous
  Country: US (occurrence: US)
  Receive Date: 20211118
  Receipt Date: 20211118
  Transmission Date: 20220303
  Serious: Yes (Hospitalization, Other)
  Sender: FDA-Public Use
  Company Number: US-MYLANLABS-2021M1085100

PATIENT
  Age: 52 Year
  Sex: Male

DRUGS (3)
  1. LISINOPRIL [Suspect]
     Active Substance: LISINOPRIL
     Indication: Hypertension
     Route: 065
  2. DILTIAZEM [Suspect]
     Active Substance: DILTIAZEM
     Indication: Hypertension
     Route: 065
  3. METFORMIN [Concomitant]
     Active Substance: METFORMIN HYDROCHLORIDE
     Indication: Type 2 diabetes mellitus
     Route: 065

REACTIONS (2)
  - Pancreatitis haemorrhagic [Recovered/Resolved]
  - Proteinuria [Unknown]
